FAERS Safety Report 14490752 (Version 1)
Quarter: 2018Q1

REPORT INFORMATION
  Report Type: Spontaneous
  Country: BE (occurrence: BE)
  Receive Date: 20180206
  Receipt Date: 20180206
  Transmission Date: 20180509
  Serious: Yes (Hospitalization, Other)
  Sender: FDA-Public Use
  Company Number: BE-IPCA LABORATORIES LIMITED-IPC-2018-BE-000167

PATIENT
  Age: 72 Year
  Sex: Male

DRUGS (1)
  1. ALLOPURINOL. [Suspect]
     Active Substance: ALLOPURINOL
     Indication: PRODUCT USED FOR UNKNOWN INDICATION
     Dosage: 48 MG, UNK
     Route: 065

REACTIONS (2)
  - Acute kidney injury [Unknown]
  - Drug reaction with eosinophilia and systemic symptoms [Unknown]
